FAERS Safety Report 8252905-1 (Version None)
Quarter: 2012Q2

REPORT INFORMATION
  Report Type: 
  Country: None (occurrence: None)
  Receive Date: 20120402
  Receipt Date: 20120126
  Transmission Date: 20120825
  Serious: No
  Sender: FDA-Public Use
  Company Number: US-ABBOTT-12P-163-0899123-00

PATIENT
  Age: 65 Year
  Weight: 91.254 kg

DRUGS (4)
  1. UNKNOWN THYROID MEDICATION [Concomitant]
     Indication: PRODUCT USED FOR UNKNOWN INDICATION
  2. FLOMAX [Concomitant]
     Indication: PRODUCT USED FOR UNKNOWN INDICATION
  3. ANDROGEL [Suspect]
     Indication: BLOOD TESTOSTERONE DECREASED
     Dates: start: 20111201, end: 20120123
  4. ANDROGEL [Suspect]
     Dates: start: 20120124

REACTIONS (2)
  - BLOOD TESTOSTERONE DECREASED [None]
  - DERMATITIS [None]
